FAERS Safety Report 6129686-0 (Version None)
Quarter: 2009Q1

REPORT INFORMATION
  Report Type: 
  Country: None (occurrence: None)
  Receive Date: 20090324
  Receipt Date: 20090318
  Transmission Date: 20090719
  Serious: Yes (Hospitalization)
  Sender: FDA-Public Use
  Company Number: ES-ASTRAZENECA-2009AC00902

PATIENT
  Age: 77 Year
  Sex: Male

DRUGS (6)
  1. TENORMIN [Suspect]
     Indication: HYPERTENSIVE HEART DISEASE
     Route: 048
     Dates: start: 20090126, end: 20090217
  2. INSULINES (WITHOUT SPECIFICATION) [Concomitant]
     Indication: TYPE 2 DIABETES MELLITUS
     Route: 058
  3. CARDYL [Concomitant]
     Indication: HYPERLIPIDAEMIA
     Route: 048
  4. MITEN PLUS [Concomitant]
     Indication: HYPERTENSION
     Route: 048
  5. PRANDIN [Concomitant]
     Indication: TYPE 2 DIABETES MELLITUS
  6. UNI-MASDIL [Concomitant]
     Indication: HYPERTENSION
     Route: 048

REACTIONS (1)
  - THROMBOCYTOPENIC PURPURA [None]
